FAERS Safety Report 20062142 (Version 1)
Quarter: 2021Q4

REPORT INFORMATION
  Report Type: Spontaneous
  Country: IL (occurrence: IL)
  Receive Date: 20211112
  Receipt Date: 20211112
  Transmission Date: 20220303
  Serious: Yes (Death, Other)
  Sender: FDA-Public Use
  Company Number: IL-GILEAD-2021-0556036

PATIENT
  Sex: Male

DRUGS (7)
  1. TRUVADA [Suspect]
     Active Substance: EMTRICITABINE\TENOFOVIR DISOPROXIL FUMARATE
     Indication: HIV infection
     Dosage: 1 DOSAGE FORM, QD
     Route: 065
     Dates: start: 2019
  2. COBICISTAT\DARUNAVIR ETHANOLATE [Concomitant]
     Active Substance: COBICISTAT\DARUNAVIR ETHANOLATE
  3. TIVICAY [Concomitant]
     Active Substance: DOLUTEGRAVIR SODIUM
  4. INTELENCE [Concomitant]
     Active Substance: ETRAVIRINE
  5. MARAVIROC [Concomitant]
     Active Substance: MARAVIROC
  6. FUZEON [Concomitant]
     Active Substance: ENFUVIRTIDE
  7. FOSTEMSAVIR [Concomitant]
     Active Substance: FOSTEMSAVIR

REACTIONS (7)
  - Death [Fatal]
  - Meningitis cryptococcal [Unknown]
  - Cryptococcal fungaemia [Unknown]
  - Sepsis [Unknown]
  - Septic shock [Unknown]
  - Clostridium difficile colitis [Unknown]
  - Cryptosporidiosis infection [Unknown]

NARRATIVE: CASE EVENT DATE: 20190101
